FAERS Safety Report 5304370-1 (Version None)
Quarter: 2007Q2

REPORT INFORMATION
  Report Type: 
  Country: None (occurrence: None)
  Receive Date: 20070423
  Receipt Date: 20070412
  Transmission Date: 20071010
  Serious: Yes (Hospitalization)
  Sender: FDA-Public Use
  Company Number: GB-ROCHE-488862

PATIENT
  Age: 74 Year
  Sex: Female
  Weight: 85 kg

DRUGS (12)
  1. XENICAL [Suspect]
     Indication: OBESITY
     Route: 048
     Dates: start: 20060914, end: 20070209
  2. BENDROFLUMETHIAZIDE [Concomitant]
  3. CANDESARTAN [Concomitant]
  4. CANDESARTAN [Concomitant]
  5. LEVOTHYROXINE SODIUM [Concomitant]
  6. LEVOTHYROXINE SODIUM [Concomitant]
  7. DIPYRIDAMOLE [Concomitant]
  8. ASPIRIN [Concomitant]
  9. TEGRETOL [Concomitant]
  10. SIMVASTATIN [Concomitant]
  11. BISOPRODOL FUMARATE [Suspect]
     Indication: DRUG USE FOR UNKNOWN INDICATION
     Route: 065
  12. PARACETAMOL [Concomitant]
     Indication: PAIN
     Route: 048
     Dates: start: 20070109

REACTIONS (4)
  - ABDOMINAL DISCOMFORT [None]
  - BRADYCARDIA [None]
  - DEFAECATION URGENCY [None]
  - MALAISE [None]
